FAERS Safety Report 6438137-8 (Version None)
Quarter: 2009Q4

REPORT INFORMATION
  Report Type: 
  Country: None (occurrence: None)
  Receive Date: 20091112
  Receipt Date: 20091028
  Transmission Date: 20100525
  Serious: Yes (Hospitalization)
  Sender: FDA-Public Use
  Company Number: JP-PFIZER INC-2009291097

PATIENT
  Age: 31 Year
  Sex: Female

DRUGS (3)
  1. METHYLPREDNISOLONE AND METHYLPREDNISOLONE ACETATE AND METHYLPREDNISOLO [Suspect]
     Indication: LUPUS NEPHRITIS
     Dosage: 500 MG, 1X/DAY
  2. PREDNISOLONE AND PREDNISOLONE STEAGLATE [Concomitant]
     Indication: LUPUS NEPHRITIS
     Dosage: 60 MG, 1X/DAY
     Route: 048
  3. PREDNISOLONE AND PREDNISOLONE STEAGLATE [Concomitant]
     Dosage: 40 MG, 1X/DAY

REACTIONS (2)
  - PSYCHOTIC DISORDER [None]
  - SYSTEMIC LUPUS ERYTHEMATOSUS [None]
